FAERS Safety Report 8763449 (Version 2)
Quarter: 2012Q4

REPORT INFORMATION
  Report Type: Spontaneous
  Country: US (occurrence: None)
  Receive Date: 20120828
  Receipt Date: 20120910
  Transmission Date: 20130627
  Serious: Yes (Hospitalization)
  Sender: FDA-Public Use
  Company Number: UTC-022256

PATIENT
  Age: 38 Year
  Sex: Male
  Weight: 70.45 kg

DRUGS (5)
  1. REMODULIN (5 MILLIGRAM/MILLILITERS, INJECTION FOR [Suspect]
     Indication: PRIMARY PULMONARY HYPERTENSION
     Dosage: (0.0677 ug/kg,1 in 1 min)
     Route: 041
     Dates: start: 20111206
  2. REMODULIN (5 MILLIGRAM/MILLILITERS, INJECTION FOR [Suspect]
     Indication: PULMONARY HYPERTENSION
     Dosage: (0.0677 ug/kg,1 in 1 min)
     Route: 041
     Dates: start: 20111206
  3. REMODULIN (5 MILLIGRAM/MILLILITERS, INJECTION FOR [Suspect]
     Indication: PRIMARY PULMONARY HYPERTENSION
     Dosage: (0.0677 ug/kg, 1 in 1 min) Intravenous drip
  4. REMODULIN (5 MILLIGRAM/MILLILITERS, INJECTION FOR [Suspect]
     Indication: PULMONARY HYPERTENSION
     Dosage: (0.0677 ug/kg, 1 in 1 min) Intravenous drip
  5. REVATIO (SILDENAFIL CITRATE) [Concomitant]

REACTIONS (1)
  - Cerebrovascular accident [None]
